FAERS Safety Report 6885508-1 (Version None)
Quarter: 2010Q3

REPORT INFORMATION
  Report Type: 
  Country: None (occurrence: None)
  Receive Date: 20100729
  Receipt Date: 20080421
  Transmission Date: 20110219
  Serious: Yes (Other)
  Sender: FDA-Public Use
  Company Number: US-PFIZER INC-2008032502

PATIENT
  Sex: Male
  Weight: 84 kg

DRUGS (4)
  1. CELEBREX [Suspect]
     Indication: CARPAL TUNNEL SYNDROME
     Dates: start: 20080328, end: 20080401
  2. VYTORIN [Suspect]
     Indication: BLOOD CHOLESTEROL INCREASED
     Dates: end: 20080401
  3. ZYRTEC [Concomitant]
  4. ZANTAC [Concomitant]

REACTIONS (6)
  - BLOOD PRESSURE INCREASED [None]
  - DRUG INEFFECTIVE [None]
  - FLUSHING [None]
  - HEART RATE INCREASED [None]
  - PARAESTHESIA [None]
  - RASH [None]
